FAERS Safety Report 6941403-0 (Version None)
Quarter: 2010Q3

REPORT INFORMATION
  Report Type: 
  Country: None (occurrence: None)
  Receive Date: 20100824
  Receipt Date: 20100824
  Transmission Date: 20110219
  Serious: Yes (Other)
  Sender: FDA-Public Use
  Company Number: None

PATIENT
  Age: 50 Year
  Sex: Female
  Weight: 90.9 kg

DRUGS (1)
  1. SENSODYNE EXTRA WHITENING WITH FLUORIDE - CONTAIN MAXIMUM GLAXOSMITHKL [Suspect]
     Indication: TOOTHACHE
     Dosage: 1 INCH STRIP
     Dates: start: 20100716, end: 20100813

REACTIONS (2)
  - PRODUCT LABEL ISSUE [None]
  - TOOTHACHE [None]
